FAERS Safety Report 24263635 (Version 2)
Quarter: 2024Q3

REPORT INFORMATION
  Report Type: Spontaneous
  Country: US (occurrence: US)
  Receive Date: 20240829
  Receipt Date: 20240830
  Transmission Date: 20241016
  Serious: No
  Sender: PFIZER
  Company Number: US-PFIZER INC-PV202400112002

PATIENT
  Age: 15 Year
  Sex: Male

DRUGS (1)
  1. PAXLOVID [Suspect]
     Active Substance: NIRMATRELVIR\RITONAVIR
     Indication: COVID-19 treatment
     Dosage: UNK

REACTIONS (1)
  - Circumstance or information capable of leading to medication error [Unknown]
